FAERS Safety Report 6223347-5 (Version None)
Quarter: 2009Q2

REPORT INFORMATION
  Report Type: 
  Country: None (occurrence: None)
  Receive Date: 20090611
  Receipt Date: 20090602
  Transmission Date: 20091009
  Serious: Yes (Hospitalization)
  Sender: FDA-Public Use
  Company Number: US-AMGEN-KDL348473

PATIENT
  Sex: Male

DRUGS (8)
  1. ENBREL [Suspect]
     Indication: PSORIATIC ARTHROPATHY
     Route: 058
     Dates: start: 20030601
  2. DIOVAN [Concomitant]
  3. NASACORT [Concomitant]
     Route: 045
  4. ADVIL [Concomitant]
  5. FEXOFENADINE [Concomitant]
  6. GLUCOSAMINE W/CHONDROITIN SULFATES [Concomitant]
  7. ACLOVATE [Concomitant]
  8. VYTORIN [Concomitant]

REACTIONS (3)
  - HIP ARTHROPLASTY [None]
  - PSORIASIS [None]
  - PSORIATIC ARTHROPATHY [None]
